FAERS Safety Report 18126075 (Version 1)
Quarter: 2020Q3

REPORT INFORMATION
  Report Type: Spontaneous
  Country: US (occurrence: US)
  Receive Date: 20200807
  Receipt Date: 20200807
  Transmission Date: 20201103
  Serious: No
  Sender: FDA-Public Use
  Company Number: US-009507513-2008USA001856

PATIENT
  Sex: Female

DRUGS (8)
  1. SYNTHROID [Concomitant]
     Active Substance: LEVOTHYROXINE SODIUM
  2. PRAMIPEXOLE. [Concomitant]
     Active Substance: PRAMIPEXOLE
  3. AMANTADINE. [Suspect]
     Active Substance: AMANTADINE HYDROCHLORIDE
     Indication: DYSKINESIA
     Dosage: 68.5 MG, 1X/DAY AT BEDTIME, ORAL
     Route: 048
     Dates: start: 20190531, end: 20190606
  4. AMANTADINE. [Suspect]
     Active Substance: AMANTADINE HYDROCHLORIDE
     Dosage: 1X/DAY AT BEDTIME,
     Route: 048
     Dates: start: 2020
  5. VITAMIN D (UNSPECIFIED) [Concomitant]
     Active Substance: VITAMIN D NOS
  6. SINEMET [Suspect]
     Active Substance: CARBIDOPA\LEVODOPA
  7. AMANTADINE. [Suspect]
     Active Substance: AMANTADINE HYDROCHLORIDE
     Indication: DYSKINESIA
     Dosage: 1X/DAY AT BEDTIME, ORAL
     Route: 048
     Dates: start: 20190607, end: 2020
  8. ALPRAZOLAM. [Concomitant]
     Active Substance: ALPRAZOLAM

REACTIONS (2)
  - Vision blurred [Unknown]
  - Muscle spasms [Not Recovered/Not Resolved]
